FAERS Safety Report 4543159-8 (Version None)
Quarter: 2005Q1

REPORT INFORMATION
  Report Type: 
  Country: None (occurrence: None)
  Receive Date: 20050103
  Receipt Date: 20041222
  Transmission Date: 20050727
  Serious: Yes (Other)
  Sender: FDA-Public Use
  Company Number: GR-JNJFOC-20041205714

PATIENT
  Age: 64 Year
  Sex: Male

DRUGS (2)
  1. RISPERDAL CONSTA [Suspect]
     Indication: SCHIZOPHRENIA
     Route: 030
  2. AKINETON [Concomitant]
     Route: 049
     Dates: start: 20040920

REACTIONS (1)
  - SUBARACHNOID HAEMORRHAGE [None]
